FAERS Safety Report 13520276 (Version 2)
Quarter: 2017Q2

REPORT INFORMATION
  Report Type: Spontaneous
  Country: US (occurrence: US)
  Receive Date: 20170507
  Receipt Date: 20170515
  Transmission Date: 20170830
  Serious: Yes (Hospitalization)
  Sender: FDA-Public Use
  Company Number: US-BEH-2017079966

PATIENT
  Sex: Male

DRUGS (2)
  1. CARIMUNE NF [Suspect]
     Active Substance: HUMAN IMMUNOGLOBULIN G
     Indication: CHRONIC INFLAMMATORY DEMYELINATING POLYRADICULONEUROPATHY
     Dosage: 54 G FOR 2 DAYS EVERY 2 WEEKS
     Route: 042
     Dates: start: 20150831
  2. CARIMUNE NF [Suspect]
     Active Substance: HUMAN IMMUNOGLOBULIN G
     Dosage: 54 G, DAILY FOR 2 DAYS Q2W
     Route: 042
     Dates: start: 20170425

REACTIONS (1)
  - Spinal operation [Recovered/Resolved]
